FAERS Safety Report 4877476-9 (Version None)
Quarter: 2006Q1

REPORT INFORMATION
  Report Type: 
  Country: None (occurrence: None)
  Receive Date: 20060109
  Receipt Date: 20051230
  Transmission Date: 20060701
  Serious: Yes (Hospitalization)
  Sender: FDA-Public Use
  Company Number: 2006RL000003

PATIENT
  Age: 69 Year
  Sex: Female

DRUGS (8)
  1. RYTHMOL [Suspect]
     Indication: ATRIAL FLUTTER
     Dosage: 1 DF; QD; PO
     Route: 048
     Dates: start: 20051118, end: 20051203
  2. RYTHMOL [Suspect]
     Indication: CARDIAC FIBRILLATION
     Dosage: 1 DF; QD; PO
     Route: 048
     Dates: start: 20051118, end: 20051203
  3. MEPROBAMATE [Suspect]
     Dosage: 1 DF; QD; PO
     Route: 048
     Dates: start: 20051115, end: 20051203
  4. DOSULEPIN (DOSULEPIN) [Suspect]
     Dosage: 1 DF; QD; PO
     Route: 048
     Dates: start: 20051115, end: 20051203
  5. FLUOXETINE [Suspect]
     Dosage: 1 DF; QD; PO
     Route: 048
     Dates: start: 20051115, end: 20051203
  6. PARACETAMOL [Concomitant]
  7. ASPIRIN [Concomitant]
  8. ALPRAZOLAM [Concomitant]

REACTIONS (8)
  - BALANCE DISORDER [None]
  - CARDIOGENIC SHOCK [None]
  - CARDIOMEGALY [None]
  - CONFUSIONAL STATE [None]
  - CYTOLYTIC HEPATITIS [None]
  - DEHYDRATION [None]
  - ELECTROCARDIOGRAM QRS COMPLEX PROLONGED [None]
  - OVERWEIGHT [None]
